FAERS Safety Report 5394458-1 (Version None)
Quarter: 2007Q3

REPORT INFORMATION
  Report Type: 
  Country: None (occurrence: None)
  Receive Date: 20070723
  Receipt Date: 20070626
  Transmission Date: 20080115
  Serious: No
  Sender: FDA-Public Use
  Company Number: US-AMGEN-US231201

PATIENT
  Age: 74 Year
  Sex: Male
  Weight: 74.9 kg

DRUGS (1)
  1. VECTIBIX [Suspect]
     Indication: COLORECTAL CANCER
     Dates: start: 20070601

REACTIONS (3)
  - ERYTHEMA [None]
  - RASH [None]
  - SKIN IRRITATION [None]
